FAERS Safety Report 9320567 (Version 1)
Quarter: 2013Q2

REPORT INFORMATION
  Report Type: Spontaneous
  Country: CH (occurrence: CH)
  Receive Date: 20130531
  Receipt Date: 20130531
  Transmission Date: 20140414
  Serious: Yes (Other)
  Sender: FDA-Public Use
  Company Number: CH-AMGEN-CHESP2013019058

PATIENT
  Age: 71 Year
  Sex: Female

DRUGS (3)
  1. ENBREL [Suspect]
     Indication: RHEUMATOID ARTHRITIS
     Dosage: 50 MG, WEEKLY
     Route: 058
     Dates: start: 20120423, end: 20120430
  2. SIMPONI [Suspect]
     Indication: RHEUMATOID ARTHRITIS
     Dosage: 50 MG, EVERY 4 WEEKS
     Route: 058
     Dates: start: 20111114, end: 20120123
  3. ARAVA [Concomitant]
     Dosage: 20 MG, 1X/DAY (1-0-0)

REACTIONS (2)
  - Stasis dermatitis [Recovered/Resolved]
  - Skin ulcer [Recovered/Resolved]
